FAERS Safety Report 4573003-4 (Version None)
Quarter: 2005Q1

REPORT INFORMATION
  Report Type: 
  Country: None (occurrence: None)
  Receive Date: 20050204
  Receipt Date: 20050127
  Transmission Date: 20050727
  Serious: Yes (Hospitalization)
  Sender: FDA-Public Use
  Company Number: 2005021397

PATIENT
  Sex: Male

DRUGS (7)
  1. NEURONTIN [Suspect]
     Indication: ILL-DEFINED DISORDER
  2. NSAID'S (NSAID'S) [Suspect]
     Indication: ILL-DEFINED DISORDER
  3. AMITRIPTYLINE HYDROCHLORIDE [Suspect]
     Indication: ILL-DEFINED DISORDER
  4. FENTANYL [Suspect]
     Indication: ILL-DEFINED DISORDER
  5. OXAZEPAM [Suspect]
     Indication: ILL-DEFINED DISORDER
  6. ACETAMINOPHEN [Suspect]
     Indication: ILL-DEFINED DISORDER
  7. SOTALOL HCL [Concomitant]

REACTIONS (3)
  - COMA [None]
  - DRUG TOXICITY [None]
  - OVERDOSE [None]
